FAERS Safety Report 11543004 (Version 2)
Quarter: 2016Q3

REPORT INFORMATION
  Report Type: Spontaneous
  Country: US (occurrence: US)
  Receive Date: 20150923
  Receipt Date: 20160726
  Transmission Date: 20161109
  Serious: Yes (Other)
  Sender: FDA-Public Use
  Company Number: US-APOTEX-2015AP012946

PATIENT
  Age: 12 Year
  Sex: Male

DRUGS (5)
  1. ALLOPURINOL TABLETS USP [Suspect]
     Active Substance: ALLOPURINOL
     Indication: COLITIS
     Dosage: 75 MG, UNK
     Route: 065
  2. MERCAPTOPURINE. [Suspect]
     Active Substance: MERCAPTOPURINE
     Indication: COLITIS
     Dosage: 12.5 MG, UNK
     Route: 065
  3. ALLOPURINOL TABLETS USP [Suspect]
     Active Substance: ALLOPURINOL
     Dosage: 50 MG, PER DAY
     Route: 065
  4. INFLIXIMAB [Concomitant]
     Active Substance: INFLIXIMAB
     Indication: COLITIS
     Dosage: UNK
     Route: 065
  5. MERCAPTOPURINE. [Suspect]
     Active Substance: MERCAPTOPURINE
     Dosage: 25 MG, PER DAY
     Route: 065

REACTIONS (2)
  - Leukopenia [Recovered/Resolved]
  - Off label use [Unknown]
